FAERS Safety Report 16787676 (Version 1)
Quarter: 2019Q3

REPORT INFORMATION
  Report Type: Spontaneous
  Country: US (occurrence: US)
  Receive Date: 20190909
  Receipt Date: 20190909
  Transmission Date: 20191005
  Serious: No
  Sender: FDA-Public Use
  Company Number: US-JNJFOC-20190903185

PATIENT
  Sex: Male

DRUGS (12)
  1. REVLIMID [Concomitant]
     Active Substance: LENALIDOMIDE
  2. DARZALEX [Suspect]
     Active Substance: DARATUMUMAB
     Indication: PLASMA CELL MYELOMA
     Route: 042
     Dates: start: 201905
  3. XARELTO [Concomitant]
     Active Substance: RIVAROXABAN
     Indication: PRODUCT USED FOR UNKNOWN INDICATION
     Route: 048
  4. ACYCLOVIR                          /00587301/ [Concomitant]
     Active Substance: ACYCLOVIR
  5. DURAGESIC [Concomitant]
     Active Substance: FENTANYL
  6. LASIX [Concomitant]
     Active Substance: FUROSEMIDE
  7. METOPROLOL. [Concomitant]
     Active Substance: METOPROLOL
  8. ATORVASTATIN [Concomitant]
     Active Substance: ATORVASTATIN
  9. POTASSIUM [Concomitant]
     Active Substance: POTASSIUM
  10. ZYPREXA [Concomitant]
     Active Substance: OLANZAPINE
  11. BABY ASPIRIN [Concomitant]
     Active Substance: ASPIRIN
  12. OXYCODONE [Concomitant]
     Active Substance: OXYCODONE

REACTIONS (3)
  - Abnormal loss of weight [Not Recovered/Not Resolved]
  - Blood grouping [Not Recovered/Not Resolved]
  - Haemoglobin decreased [Not Recovered/Not Resolved]

NARRATIVE: CASE EVENT DATE: 2019
